FAERS Safety Report 5206867-1 (Version None)
Quarter: 2006Q4

REPORT INFORMATION
  Report Type: 
  Country: None (occurrence: None)
  Receive Date: 20061030
  Receipt Date: 20060727
  Transmission Date: 20070319
  Serious: No
  Sender: FDA-Public Use
  Company Number: 254797

PATIENT
  Age: 54 Year
  Sex: Female
  Weight: 158.7 kg

DRUGS (4)
  1. LEVEMIR [Suspect]
     Indication: INSULIN-REQUIRING TYPE II DIABETES MELLITUS
     Dosage: 35 IU, QD, SUBCUTANEOUS
     Route: 058
     Dates: start: 20060706
  2. GLUCOPHAGE [Concomitant]
  3. GLIPIZIDE [Concomitant]
  4. ALTACE [Concomitant]

REACTIONS (1)
  - INJECTION SITE ERYTHEMA [None]
